FAERS Safety Report 7916152-2 (Version None)
Quarter: 2011Q4

REPORT INFORMATION
  Report Type: 
  Country: None (occurrence: None)
  Receive Date: 20111116
  Receipt Date: 20111111
  Transmission Date: 20120403
  Serious: Yes (Hospitalization, Other)
  Sender: FDA-Public Use
  Company Number: US-BIOGENIDEC-2011BI039578

PATIENT
  Age: 62 Year
  Sex: Male

DRUGS (1)
  1. AVONEX [Suspect]
     Indication: MULTIPLE SCLEROSIS
     Route: 030
     Dates: start: 20110602

REACTIONS (5)
  - CONVULSION [None]
  - DEPRESSION [None]
  - HYPERTENSION [None]
  - THROMBOSIS [None]
  - PULMONARY THROMBOSIS [None]
